FAERS Safety Report 8757056 (Version 1)
Quarter: 2012Q4

REPORT INFORMATION
  Report Type: 
  Country: MY (occurrence: MY)
  Receive Date: 20120828
  Receipt Date: 20120828
  Transmission Date: 20130627
  Serious: Yes (Other)
  Sender: FDA-Public Use
  Company Number: MY-PFIZER INC-2012187533

PATIENT
  Age: 18 Year
  Sex: Female

DRUGS (2)
  1. ATGAM [Suspect]
     Indication: APLASTIC ANAEMIA
     Route: 042
  2. CYCLOSPORINE [Concomitant]

REACTIONS (1)
  - Myelitis transverse [Unknown]
